FAERS Safety Report 7005993-4 (Version None)
Quarter: 2010Q3

REPORT INFORMATION
  Report Type: 
  Country: None (occurrence: None)
  Receive Date: 20100921
  Receipt Date: 20100909
  Transmission Date: 20110219
  Serious: Yes (Death)
  Sender: FDA-Public Use
  Company Number: JP-GENZYME-THYM-1001495

PATIENT
  Sex: Male
  Weight: 50 kg

DRUGS (5)
  1. THYMOGLOBULIN [Suspect]
     Indication: HISTIOCYTOSIS HAEMATOPHAGIC
     Dosage: 175 MG, QD
     Route: 042
     Dates: start: 20100408, end: 20100409
  2. GABEXATE MESILATE [Concomitant]
     Indication: DISSEMINATED INTRAVASCULAR COAGULATION
     Dosage: UNK
     Route: 065
     Dates: start: 20100408, end: 20100408
  3. BIAPENEM [Concomitant]
     Indication: HISTIOCYTOSIS HAEMATOPHAGIC
     Route: 065
  4. METHYLPREDNISOLONE SODIUM SUCCINATE [Concomitant]
     Indication: PREMEDICATION
     Route: 065
  5. MICAFUNGIN SODIUM [Concomitant]
     Indication: HISTIOCYTOSIS HAEMATOPHAGIC
     Route: 065

REACTIONS (2)
  - CEREBRAL HAEMORRHAGE [None]
  - HISTIOCYTOSIS HAEMATOPHAGIC [None]
